FAERS Safety Report 10077609 (Version 2)
Quarter: 2014Q2

REPORT INFORMATION
  Report Type: Spontaneous
  Country: US (occurrence: US)
  Receive Date: 20140414
  Receipt Date: 20140414
  Transmission Date: 20141212
  Serious: No
  Sender: FDA-Public Use
  Company Number: US-BANPHARM-20131971

PATIENT
  Age: 90 Year
  Sex: Male

DRUGS (2)
  1. ALEVE LIQUID GELS 220 MG [Suspect]
     Dosage: 1 DF Q12H,
     Route: 048
  2. NARCOTICS [Concomitant]

REACTIONS (2)
  - Discomfort [Unknown]
  - Incorrect drug administration duration [Unknown]
